FAERS Safety Report 18614944 (Version 1)
Quarter: 2020Q4

REPORT INFORMATION
  Report Type: Spontaneous
  Country: US (occurrence: US)
  Receive Date: 20201215
  Receipt Date: 20201215
  Transmission Date: 20210114
  Serious: No
  Sender: FDA-Public Use
  Company Number: NVSC2020US331519

PATIENT
  Sex: Female

DRUGS (3)
  1. OCTREOTIDE SANDOZ 0,05 MG/ML, OPLOSSING VOOR INJECTIE [Suspect]
     Active Substance: OCTREOTIDE ACETATE
  2. OCTREOTIDE SANDOZ 0,05 MG/ML, OPLOSSING VOOR INJECTIE [Suspect]
     Active Substance: OCTREOTIDE ACETATE
  3. OCTREOTIDE SANDOZ 0,05 MG/ML, OPLOSSING VOOR INJECTIE [Suspect]
     Active Substance: OCTREOTIDE ACETATE
     Indication: ACROMEGALY
     Dosage: UNK
     Route: 065

REACTIONS (1)
  - Vulvovaginal swelling [Recovering/Resolving]
